FAERS Safety Report 10731018 (Version 1)
Quarter: 2015Q1

REPORT INFORMATION
  Report Type: Spontaneous
  Country: US (occurrence: None)
  Receive Date: 20150120
  Receipt Date: 20150120
  Transmission Date: 20150721
  Serious: Yes (Other)
  Sender: FDA-Public Use
  Company Number: None

PATIENT
  Age: 5 Year
  Sex: Male
  Weight: 21.77 kg

DRUGS (1)
  1. TAMIFLU [Suspect]
     Active Substance: OSELTAMIVIR PHOSPHATE
     Indication: INFLUENZA
     Dosage: 1 TSP, TWICE DAILY, TAKEN BY MOUTH
     Route: 048
     Dates: start: 20150115, end: 20150116

REACTIONS (3)
  - Dyspnoea [None]
  - Thirst [None]
  - Dysphonia [None]

NARRATIVE: CASE EVENT DATE: 20150116
